FAERS Safety Report 4384230-3 (Version None)
Quarter: 2004Q2

REPORT INFORMATION
  Report Type: 
  Country: None (occurrence: None)
  Receive Date: 20040607
  Receipt Date: 20031203
  Transmission Date: 20050107
  Serious: Yes (Other)
  Sender: FDA-Public Use
  Company Number: 320696

PATIENT
  Sex: Male
  Weight: 4.6 kg

DRUGS (3)
  1. ACCUTANE [Suspect]
     Indication: ACNE CYSTIC
     Dosage: 40 MG DAILY ORAL
     Route: 048
     Dates: start: 20000915, end: 20001203
  2. IMITREX [Concomitant]
  3. ASPIRIN [Concomitant]

REACTIONS (2)
  - NORMAL NEWBORN [None]
  - PREGNANCY [None]
